FAERS Safety Report 5874863-7 (Version None)
Quarter: 2008Q3

REPORT INFORMATION
  Report Type: 
  Country: None (occurrence: None)
  Receive Date: 20080904
  Receipt Date: 20080825
  Transmission Date: 20090109
  Serious: No
  Sender: FDA-Public Use
  Company Number: 2008TG0213

PATIENT
  Age: 58 Year
  Sex: Male

DRUGS (2)
  1. TRIGLIDE [Suspect]
     Indication: HYPERTRIGLYCERIDAEMIA
     Dosage: 200 MG, QD, PO
     Route: 048
  2. ATORVASTAIN [Concomitant]

REACTIONS (4)
  - HAEMODIALYSIS [None]
  - METABOLIC ACIDOSIS [None]
  - RENAL FAILURE ACUTE [None]
  - RHABDOMYOLYSIS [None]
